FAERS Safety Report 6071406-2 (Version None)
Quarter: 2009Q1

REPORT INFORMATION
  Report Type: 
  Country: None (occurrence: None)
  Receive Date: 20090130
  Receipt Date: 20090127
  Transmission Date: 20090719
  Serious: Yes (Other)
  Sender: FDA-Public Use
  Company Number: 200814106

PATIENT
  Age: 6 Year
  Sex: Male

DRUGS (1)
  1. VIVAGLOBIN [Suspect]
     Indication: IMMUNODEFICIENCY
     Dosage: SC
     Route: 058
     Dates: start: 20071001, end: 20071001

REACTIONS (11)
  - APHASIA [None]
  - CHOREA [None]
  - COGNITIVE DISORDER [None]
  - DYSPHAGIA [None]
  - EYE PRURITUS [None]
  - GAIT DISTURBANCE [None]
  - INCONTINENCE [None]
  - MYOCLONUS [None]
  - PRURITUS [None]
  - PSYCHOMOTOR SKILLS IMPAIRED [None]
  - TIC [None]
